FAERS Safety Report 7898606-0 (Version None)
Quarter: 2011Q4

REPORT INFORMATION
  Report Type: 
  Country: None (occurrence: None)
  Receive Date: 20111107
  Receipt Date: 20111107
  Transmission Date: 20120403
  Serious: No
  Sender: FDA-Public Use
  Company Number: None

PATIENT
  Age: 5 Year
  Sex: Female
  Weight: 27.215 kg

DRUGS (1)
  1. SINGULAIR [Suspect]
     Indication: SINUS DISORDER
     Dosage: 1
     Route: 048
     Dates: start: 20111021, end: 20111102

REACTIONS (8)
  - SLEEP DISORDER [None]
  - NIGHTMARE [None]
  - DISTURBANCE IN ATTENTION [None]
  - ABNORMAL BEHAVIOUR [None]
  - MOOD SWINGS [None]
  - AGITATION [None]
  - AGGRESSION [None]
  - HALLUCINATION [None]
